FAERS Safety Report 5594213-3 (Version None)
Quarter: 2008Q1

REPORT INFORMATION
  Report Type: 
  Country: None (occurrence: None)
  Receive Date: 20080115
  Receipt Date: 20080110
  Transmission Date: 20080703
  Serious: Yes (Life-Threatening)
  Sender: FDA-Public Use
  Company Number: 150-C5013-08010522

PATIENT
  Age: 62 Year
  Sex: Female
  Weight: 60 kg

DRUGS (1)
  1. CC-5013 (LENALIDOMIDE) (CAPSULES) [Suspect]
     Indication: 5Q-SYNDROME
     Dosage: ORAL
     Route: 048
     Dates: end: 20071213

REACTIONS (2)
  - ACUTE MYELOID LEUKAEMIA [None]
  - NO THERAPEUTIC RESPONSE [None]
